FAERS Safety Report 9643200 (Version 1)
Quarter: 2013Q4

REPORT INFORMATION
  Report Type: Spontaneous
  Country: US (occurrence: US)
  Receive Date: 20131024
  Receipt Date: 20131024
  Transmission Date: 20140711
  Serious: No
  Sender: FDA-Public Use
  Company Number: US-GLAXOSMITHKLINE-A1033101A

PATIENT
  Age: 29 Year
  Sex: Female

DRUGS (2)
  1. DUAC [Suspect]
     Indication: RASH
     Dosage: 1APP PER DAY
     Route: 061
     Dates: start: 2007
  2. NO CONCURRENT MEDICATION [Concomitant]

REACTIONS (2)
  - Rash [Unknown]
  - Skin irritation [Unknown]
